FAERS Safety Report 17228666 (Version 2)
Quarter: 2020Q3

REPORT INFORMATION
  Report Type: Spontaneous
  Country: US (occurrence: US)
  Receive Date: 20200103
  Receipt Date: 20200929
  Transmission Date: 20201102
  Serious: Yes (Other)
  Sender: FDA-Public Use
  Company Number: US-PFIZER INC-2019547811

PATIENT
  Age: 51 Year
  Sex: Male

DRUGS (1)
  1. DILANTIN [Suspect]
     Active Substance: PHENYTOIN
     Dosage: 200 MG, 2X/DAY (TAKE 2 CAPS BY MOUTH 2 TIMES DAILY)
     Route: 048
     Dates: start: 20191206

REACTIONS (3)
  - Dyslexia [Unknown]
  - Seizure [Unknown]
  - Illness [Unknown]
